FAERS Safety Report 9442184 (Version 1)
Quarter: 2013Q3

REPORT INFORMATION
  Report Type: Spontaneous
  Country: CN (occurrence: CN)
  Receive Date: 20130806
  Receipt Date: 20130806
  Transmission Date: 20140515
  Serious: Yes (Other)
  Sender: FDA-Public Use
  Company Number: CN-ASTRAZENECA-2013SE52268

PATIENT
  Age: 25 Year
  Sex: Female
  Weight: 74 kg

DRUGS (2)
  1. LIDOCAINE [Suspect]
     Indication: EPIDURAL ANAESTHESIA
     Route: 008
  2. LIDOCAINE [Suspect]
     Indication: EPIDURAL ANAESTHESIA
     Route: 008

REACTIONS (1)
  - Horner^s syndrome [Recovered/Resolved]
